FAERS Safety Report 10729713 (Version 2)
Quarter: 2015Q1

REPORT INFORMATION
  Report Type: Spontaneous
  Country: HU (occurrence: HU)
  Receive Date: 20150122
  Receipt Date: 20150126
  Transmission Date: 20150721
  Serious: Yes (Hospitalization)
  Sender: FDA-Public Use
  Company Number: HU-CELGENE-076-21880-14045511

PATIENT
  Sex: Female
  Weight: 73 kg

DRUGS (7)
  1. DEXAMETHASONE. [Suspect]
     Active Substance: DEXAMETHASONE
     Indication: PLASMA CELL MYELOMA
     Route: 048
     Dates: start: 20130604, end: 20140416
  2. REVLIMID [Suspect]
     Active Substance: LENALIDOMIDE
  3. BLINDED MLN9708 [Suspect]
     Active Substance: IXAZOMIB
     Indication: PLASMA CELL MYELOMA
     Route: 048
     Dates: start: 20130604, end: 20140422
  4. BLINDED MLN9708 [Suspect]
     Active Substance: IXAZOMIB
     Route: 048
     Dates: end: 20140416
  5. DEXAMETHASONE. [Suspect]
     Active Substance: DEXAMETHASONE
     Route: 048
     Dates: end: 20140422
  6. REVLIMID [Suspect]
     Active Substance: LENALIDOMIDE
     Indication: PLASMA CELL MYELOMA
     Route: 048
     Dates: start: 20130604
  7. CC-5013 [Suspect]
     Active Substance: LENALIDOMIDE

REACTIONS (1)
  - Organising pneumonia [Recovered/Resolved with Sequelae]

NARRATIVE: CASE EVENT DATE: 20140422
